FAERS Safety Report 7302767-1 (Version None)
Quarter: 2011Q1

REPORT INFORMATION
  Report Type: 
  Country: None (occurrence: None)
  Receive Date: 20110218
  Receipt Date: 20100514
  Transmission Date: 20110831
  Serious: Yes (Death, Hospitalization, Other)
  Sender: FDA-Public Use
  Company Number: PHHO2009US09381

PATIENT
  Sex: Male

DRUGS (15)
  1. DASATIMIB [Suspect]
     Indication: CHRONIC MYELOID LEUKAEMIA
     Dosage: UNK
     Dates: start: 20090625
  2. MEROPENEM [Concomitant]
  3. FUROSEMIDE [Concomitant]
  4. NOVORAPID [Concomitant]
     Indication: DIABETES MELLITUS
     Dosage: 10IU
     Route: 058
     Dates: start: 20090111, end: 20090607
  5. LANSOPRAZOLE [Concomitant]
  6. NILOTINIB [Suspect]
     Dosage: 800 MG, QD
     Dates: start: 20090606
  7. LACTOMIN [Concomitant]
  8. CANDESARTAN CILEXETIL [Concomitant]
  9. ITRACONAZOLE [Concomitant]
  10. CEFEPIME HYDROCHLORIDE [Concomitant]
  11. OXYCONTIN [Concomitant]
     Indication: CHRONIC MYELOID LEUKAEMIA
     Dosage: UNK
     Route: 048
     Dates: start: 20090319, end: 20090708
  12. FILGRASTIM [Concomitant]
  13. NILOTINIB [Suspect]
     Indication: CHRONIC MYELOID LEUKAEMIA
     Dosage: 400 MG, QD
     Route: 048
     Dates: start: 20090530, end: 20090605
  14. ALLOPURINOL [Concomitant]
     Dosage: UNK
     Dates: start: 20090107
  15. MOSAPRIDE CITRATE [Concomitant]

REACTIONS (12)
  - SEPTIC SHOCK [None]
  - CHRONIC MYELOID LEUKAEMIA TRANSFORMATION [None]
  - DRUG RESISTANCE [None]
  - SEPSIS [None]
  - WHITE BLOOD CELL COUNT DECREASED [None]
  - PLATELET COUNT DECREASED [None]
  - BRONCHOPULMONARY ASPERGILLOSIS [None]
  - BLAST CRISIS IN MYELOGENOUS LEUKAEMIA [None]
  - NEUTROPHIL COUNT DECREASED [None]
  - PLEURAL EFFUSION [None]
  - PYREXIA [None]
  - HEPATIC ENZYME INCREASED [None]
